FAERS Safety Report 5156431-8 (Version None)
Quarter: 2006Q4

REPORT INFORMATION
  Report Type: 
  Country: None (occurrence: None)
  Receive Date: 20061122
  Receipt Date: 20061114
  Transmission Date: 20070319
  Serious: Yes (Death)
  Sender: FDA-Public Use
  Company Number: US-JNJFOC-20061003418

PATIENT
  Sex: Female
  Weight: 70.31 kg

DRUGS (12)
  1. RISPERDAL CONSTA [Suspect]
     Route: 030
  2. RISPERDAL CONSTA [Suspect]
     Route: 030
  3. RISPERDAL CONSTA [Suspect]
     Indication: SCHIZOPHRENIA
     Route: 030
  4. COUMADIN [Suspect]
     Indication: DRUG USE FOR UNKNOWN INDICATION
  5. PERPHENAZINE [Concomitant]
  6. CHEMOTHERAPY [Concomitant]
     Indication: NEOPLASM MALIGNANT
  7. BENZTROPINE MESYLATE [Concomitant]
  8. CLONIDINE [Concomitant]
  9. ARIMIDEX [Concomitant]
  10. DITROPAN [Concomitant]
  11. COZAAR [Concomitant]
  12. FUROSEMIDE [Concomitant]

REACTIONS (2)
  - CEREBROVASCULAR ACCIDENT [None]
  - PRESCRIBED OVERDOSE [None]
